FAERS Safety Report 6767840-5 (Version None)
Quarter: 2010Q2

REPORT INFORMATION
  Report Type: 
  Country: None (occurrence: None)
  Receive Date: 20100614
  Receipt Date: 20100602
  Transmission Date: 20101027
  Serious: Yes (Hospitalization)
  Sender: FDA-Public Use
  Company Number: PHHY2010JP24896

PATIENT
  Sex: Male
  Weight: 62 kg

DRUGS (14)
  1. GLEEVEC [Suspect]
     Indication: CHRONIC MYELOID LEUKAEMIA
     Dosage: 400MG DAILY
     Route: 048
     Dates: start: 20100318, end: 20100329
  2. MEROPEN [Suspect]
     Indication: PYREXIA
     Dosage: 1MG
     Route: 042
     Dates: start: 20100329, end: 20100405
  3. MAXIPIME [Suspect]
     Dosage: UNK
     Route: 042
     Dates: start: 20100327, end: 20100327
  4. GASPORT [Suspect]
     Dosage: 20 MG
     Route: 048
     Dates: start: 20100329, end: 20100411
  5. IRSOGLADINE MALEATE [Suspect]
     Dosage: 2 DF
     Route: 048
     Dates: start: 20100329, end: 20100411
  6. PENMALIN [Suspect]
     Indication: TOOTH EXTRACTION
     Dosage: UNK
     Route: 042
     Dates: start: 20100427, end: 20100427
  7. CEFDINIR [Suspect]
     Indication: TOOTH EXTRACTION
     Dosage: 3 DF
     Route: 048
     Dates: start: 20100323, end: 20100328
  8. NAUZELIN [Suspect]
     Dosage: 3 DF
     Route: 048
     Dates: start: 20100329, end: 20100408
  9. KLARICID [Concomitant]
     Indication: PYREXIA
     Dosage: 2 DF
     Route: 048
     Dates: start: 20100327, end: 20100329
  10. LOXOPROFEN [Concomitant]
     Dosage: 3DF
     Route: 048
     Dates: start: 20100323, end: 20100401
  11. MYSLEE [Concomitant]
     Indication: INSOMNIA
     Dosage: UNK
     Route: 048
     Dates: start: 20100402, end: 20100412
  12. URSO 250 [Concomitant]
     Dosage: 3 DF DAILY
  13. URSO 250 [Concomitant]
     Dosage: 6DF DAILY
     Dates: start: 20100421
  14. EPINASTINE [Concomitant]
     Indication: RASH
     Dosage: 1DF
     Route: 048
     Dates: start: 20100329, end: 20100404

REACTIONS (6)
  - HYPOAESTHESIA [None]
  - LIVER DISORDER [None]
  - PYREXIA [None]
  - RASH [None]
  - TOOTH EXTRACTION [None]
  - VIRAL RASH [None]
